FAERS Safety Report 16010531 (Version 1)
Quarter: 2019Q1

REPORT INFORMATION
  Report Type: Spontaneous
  Country: US (occurrence: US)
  Receive Date: 20190225
  Receipt Date: 20190225
  Transmission Date: 20190418
  Serious: No
  Sender: FDA-Public Use
  Company Number: US-PFIZER INC-2019066648

PATIENT
  Age: 68 Year
  Sex: Female
  Weight: 84.81 kg

DRUGS (1)
  1. LATANOPROST. [Suspect]
     Active Substance: LATANOPROST
     Indication: GLAUCOMA
     Dosage: ONE DROP IN INFECTED EYE OR EYES IN THE EVENING)
     Route: 047

REACTIONS (3)
  - Poor quality product administered [Unknown]
  - Product storage error [Unknown]
  - Memory impairment [Unknown]
